FAERS Safety Report 9944327 (Version 1)
Quarter: 2014Q1

REPORT INFORMATION
  Report Type: Report from Study
  Country: US (occurrence: US)
  Receive Date: 20140303
  Receipt Date: 20140303
  Transmission Date: 20141002
  Serious: Yes (Hospitalization)
  Sender: FDA-Public Use
  Company Number: US-ABBVIE-13P-163-1055891-00

PATIENT
  Age: 45 Year
  Sex: Male

DRUGS (5)
  1. HUMIRA [Suspect]
     Indication: ANKYLOSING SPONDYLITIS
  2. MVI [Concomitant]
     Indication: PRODUCT USED FOR UNKNOWN INDICATION
  3. ASA [Concomitant]
     Indication: ANTICOAGULANT THERAPY
  4. PREDNISONE [Concomitant]
     Indication: BRONCHITIS
     Dosage: UNTIL 28 FEB 2013; THEN 5 MG FOR 1 WEEK THEN DISC.
  5. ENALAPRIL [Concomitant]
     Indication: HYPERTENSION

REACTIONS (2)
  - Bronchitis [Recovering/Resolving]
  - Salivary gland enlargement [Recovering/Resolving]
